FAERS Safety Report 11416150 (Version 1)
Quarter: 2015Q3

REPORT INFORMATION
  Report Type: Spontaneous
  Country: US (occurrence: US)
  Receive Date: 20150825
  Receipt Date: 20150825
  Transmission Date: 20151125
  Serious: No
  Sender: FDA-Public Use
  Company Number: US-TEVA-560053USA

PATIENT
  Age: 70 Year
  Sex: Female
  Weight: 68.03 kg

DRUGS (3)
  1. SYNTHROID [Concomitant]
     Active Substance: LEVOTHYROXINE SODIUM
  2. FEXOFENADINE [Suspect]
     Active Substance: FEXOFENADINE\FEXOFENADINE HYDROCHLORIDE
     Indication: DERMATITIS CONTACT
     Dosage: 180 MILLIGRAM DAILY;
     Route: 048
     Dates: start: 20150425
  3. BYSTOLIC [Concomitant]
     Active Substance: NEBIVOLOL HYDROCHLORIDE
     Dates: start: 2012

REACTIONS (4)
  - Nervousness [Recovered/Resolved]
  - Drug administered to patient of inappropriate age [Unknown]
  - Blood pressure increased [Recovered/Resolved]
  - Off label use [Unknown]

NARRATIVE: CASE EVENT DATE: 20150425
